FAERS Safety Report 8487545-2 (Version None)
Quarter: 2012Q3

REPORT INFORMATION
  Report Type: 
  Country: None (occurrence: None)
  Receive Date: 20120705
  Receipt Date: 20120621
  Transmission Date: 20120928
  Serious: Yes (Life-Threatening, Hospitalization, Other)
  Sender: FDA-Public Use
  Company Number: GB-RANBAXY-2012R1-57034

PATIENT
  Age: 47 Year
  Sex: Male

DRUGS (6)
  1. ZOPICLONE [Suspect]
     Indication: INSOMNIA
     Dosage: UNK
     Route: 048
     Dates: start: 20120430
  2. OLANZAPINE [Concomitant]
     Indication: PRODUCT USED FOR UNKNOWN INDICATION
     Dosage: UNK
     Route: 048
     Dates: start: 20120511
  3. NITRAZEPAM [Suspect]
     Indication: PRODUCT USED FOR UNKNOWN INDICATION
     Dosage: UNK
     Route: 048
  4. CLOZARIL [Suspect]
     Indication: SCHIZOPHRENIA
     Dosage: UNK
     Route: 048
     Dates: start: 20120501
  5. CLOZARIL [Suspect]
     Dosage: UNK
     Route: 065
     Dates: start: 20120525
  6. LORAZEPAM [Suspect]
     Indication: ANXIETY
     Dosage: 1 MG, PRN
     Route: 048
     Dates: start: 20120430

REACTIONS (7)
  - PNEUMONIA ASPIRATION [None]
  - LOWER RESPIRATORY TRACT INFECTION [None]
  - WHITE BLOOD CELL COUNT INCREASED [None]
  - RESPIRATORY ARREST [None]
  - NEUTROPHIL COUNT INCREASED [None]
  - OVERDOSE [None]
  - C-REACTIVE PROTEIN INCREASED [None]
